FAERS Safety Report 10077461 (Version 2)
Quarter: 2014Q2

REPORT INFORMATION
  Report Type: Report from Study
  Country: TW (occurrence: TW)
  Receive Date: 20140414
  Receipt Date: 20140424
  Transmission Date: 20141212
  Serious: No
  Sender: FDA-Public Use
  Company Number: TW-009507513-1404TWN007624

PATIENT
  Age: 28 Year
  Sex: Male
  Weight: 63 kg

DRUGS (41)
  1. BOCEPREVIR [Suspect]
     Indication: CHRONIC HEPATITIS C
     Dosage: 4 CAPSULES, MORNING
     Route: 048
     Dates: start: 20130304, end: 20130317
  2. BOCEPREVIR [Suspect]
     Dosage: 4 CAPSULES, MORNING
     Route: 048
     Dates: start: 20130319, end: 20130525
  3. BOCEPREVIR [Suspect]
     Dosage: 4 CAPSULES, MORNING
     Route: 048
     Dates: start: 20130527, end: 20130805
  4. BOCEPREVIR [Suspect]
     Dosage: 4 CAPSULES, MORNING
     Route: 048
     Dates: start: 20130814, end: 20130818
  5. BOCEPREVIR [Suspect]
     Dosage: 4 CAPSULES, AFTERNOON
     Route: 048
     Dates: start: 20130304, end: 20130318
  6. BOCEPREVIR [Suspect]
     Dosage: 4 CAPSULES, AFTERNOON
     Route: 048
     Dates: start: 20130320, end: 20130412
  7. BOCEPREVIR [Suspect]
     Dosage: 4 CAPSULES, AFTERNOON
     Route: 048
     Dates: start: 20130414, end: 20130419
  8. BOCEPREVIR [Suspect]
     Dosage: 4 CAPSULES, AFTERNOON
     Route: 048
     Dates: start: 20130421, end: 20130517
  9. BOCEPREVIR [Suspect]
     Dosage: 4 CAPSULES AFTERNOON
     Route: 048
     Dates: start: 20130519, end: 20130525
  10. BOCEPREVIR [Suspect]
     Dosage: 4 CAPSULES, AFTERNOON
     Route: 048
     Dates: start: 20130527, end: 20130607
  11. BOCEPREVIR [Suspect]
     Dosage: 4 CAPSULES, AFTERNOON
     Route: 048
     Dates: start: 20130609, end: 20130630
  12. BOCEPREVIR [Suspect]
     Dosage: 4 CAPSULES, AFTERNOON
     Route: 048
     Dates: start: 20130702, end: 20130726
  13. BOCEPREVIR [Suspect]
     Dosage: 4 CAPSULES, AFTERNOON
     Route: 048
     Dates: start: 20130728, end: 20130805
  14. BOCEPREVIR [Suspect]
     Dosage: 4 CAPSULES, AFTERNOON
     Route: 048
     Dates: start: 20130814, end: 20130818
  15. BOCEPREVIR [Suspect]
     Dosage: 4 CAPSULES, EVENING
     Route: 048
     Dates: start: 20130304, end: 20130413
  16. BOCEPREVIR [Suspect]
     Dosage: 4 CAPSULES, EVENING
     Route: 048
     Dates: start: 20130415, end: 20130601
  17. BOCEPREVIR [Suspect]
     Dosage: 4 CAPSULES, EVENING
     Route: 048
     Dates: start: 20130603, end: 20130608
  18. BOCEPREVIR [Suspect]
     Dosage: 4 CAPSULES, EVENING
     Route: 048
     Dates: start: 20130610, end: 20130625
  19. BOCEPREVIR [Suspect]
     Dosage: 4 CAPSULES, EVENING
     Route: 048
     Dates: start: 20130627, end: 20130709
  20. BOCEPREVIR [Suspect]
     Dosage: 4 CAPSULES, EVENING
     Route: 048
     Dates: start: 20130712, end: 20130727
  21. BOCEPREVIR [Suspect]
     Dosage: 4 CAPSULES, EVENING
     Route: 048
     Dates: start: 20130729, end: 20130805
  22. BOCEPREVIR [Suspect]
     Dosage: 4 CAPSULES, EVENING
     Route: 048
     Dates: start: 20130813, end: 20130818
  23. RIBAVIRIN [Suspect]
     Indication: CHRONIC HEPATITIS C
     Dosage: 3 CAPSULES, QAM
     Route: 048
     Dates: start: 20130121, end: 20130121
  24. RIBAVIRIN [Suspect]
     Dosage: 2 CAPSULES, QAM
     Route: 048
     Dates: start: 20130122, end: 20130203
  25. RIBAVIRIN [Suspect]
     Dosage: 3 CAPSULES, QAM
     Route: 048
     Dates: start: 20130204, end: 20130502
  26. RIBAVIRIN [Suspect]
     Dosage: 2 CAPSULES, QAM
     Route: 048
     Dates: start: 20130503, end: 20130512
  27. RIBAVIRIN [Suspect]
     Dosage: 1 CAPSULES, QAM
     Route: 048
     Dates: start: 20130513, end: 20130520
  28. RIBAVIRIN [Suspect]
     Dosage: 2 CAPSULES, QAM
     Route: 048
     Dates: start: 20130521, end: 20130602
  29. RIBAVIRIN [Suspect]
     Dosage: 3 CAPSULES, QAM
     Route: 048
     Dates: start: 20130603, end: 20130804
  30. RIBAVIRIN [Suspect]
     Dosage: 3 CAPSULES, QAM
     Route: 048
     Dates: start: 20130814, end: 20130818
  31. RIBAVIRIN [Suspect]
     Dosage: 3 CAPSULES, QPM
     Route: 048
     Dates: start: 20130121, end: 20130203
  32. RIBAVIRIN [Suspect]
     Dosage: 2 CAPSULES, QPM
     Route: 048
     Dates: start: 20130204, end: 20130502
  33. RIBAVIRIN [Suspect]
     Dosage: 1 CAPSULES, QPM
     Route: 048
     Dates: start: 20130503, end: 20130512
  34. RIBAVIRIN [Suspect]
     Dosage: 2 CAPSULES, QPM
     Route: 048
     Dates: start: 20130513, end: 20130709
  35. RIBAVIRIN [Suspect]
     Dosage: 2 CAPSULES, QPM
     Route: 048
     Dates: start: 20130712, end: 20130804
  36. RIBAVIRIN [Suspect]
     Dosage: 2 CAPSULES, QPM
     Route: 048
     Dates: start: 20130813, end: 20130818
  37. PEGINTERFERON ALFA-2A [Suspect]
     Indication: CHRONIC HEPATITIS C
     Dosage: 180 MICROGRAM, QW
     Route: 058
     Dates: start: 20130121, end: 20130401
  38. PEGINTERFERON ALFA-2A [Suspect]
     Dosage: 90 MICROGRAM, QW
     Route: 058
     Dates: start: 20130415, end: 20130513
  39. PEGINTERFERON ALFA-2A [Suspect]
     Dosage: 135 MICROGRAM, QW
     Route: 058
     Dates: start: 20130521, end: 20130702
  40. PEGINTERFERON ALFA-2A [Suspect]
     Dosage: 135 MICROGRAM, QW
     Route: 058
     Dates: start: 20130715, end: 20130730
  41. PEGINTERFERON ALFA-2A [Suspect]
     Dosage: 135 MICROGRAM, QW
     Route: 058
     Dates: start: 20130813, end: 20130813

REACTIONS (1)
  - VIIth nerve paralysis [Recovered/Resolved]
